FAERS Safety Report 5637276-9 (Version None)
Quarter: 2008Q1

REPORT INFORMATION
  Report Type: 
  Country: None (occurrence: None)
  Receive Date: 20080225
  Receipt Date: 20080215
  Transmission Date: 20080703
  Serious: Yes (Other)
  Sender: FDA-Public Use
  Company Number: US-JNJFOC-20080204187

PATIENT
  Age: 17 Month
  Sex: Male
  Weight: 9.98 kg

DRUGS (5)
  1. TYLENOL (CAPLET) [Suspect]
     Route: 048
  2. TYLENOL (CAPLET) [Suspect]
     Indication: PYREXIA
     Dosage: ^DOSE AND 1/2^
     Route: 048
  3. AXID [Concomitant]
     Indication: GASTROOESOPHAGEAL REFLUX DISEASE
  4. ZEGERID [Concomitant]
     Indication: GASTROOESOPHAGEAL REFLUX DISEASE
  5. AMOXICILLIN [Concomitant]
     Indication: EAR INFECTION
     Dosage: X 10 DAYS

REACTIONS (2)
  - DIARRHOEA [None]
  - HAEMATOCHEZIA [None]
